FAERS Safety Report 8076011-4 (Version None)
Quarter: 2012Q1

REPORT INFORMATION
  Report Type: 
  Country: None (occurrence: None)
  Receive Date: 20120127
  Receipt Date: 20110414
  Transmission Date: 20120608
  Serious: No
  Sender: FDA-Public Use
  Company Number: US-GLAXOSMITHKLINE-A0923016A

PATIENT
  Age: 25 Year
  Sex: Male

DRUGS (3)
  1. WELLBUTRIN [Suspect]
     Indication: DEPRESSION
     Route: 048
     Dates: start: 20050101
  2. ZYBAN [Suspect]
     Indication: EX-TOBACCO USER
     Route: 048
     Dates: start: 20020101
  3. NO CONCURRENT MEDICATION [Concomitant]

REACTIONS (4)
  - URTICARIA [None]
  - JOINT SWELLING [None]
  - SWELLING [None]
  - PHARYNGEAL OEDEMA [None]
